FAERS Safety Report 21544700 (Version 1)
Quarter: 2022Q4

REPORT INFORMATION
  Report Type: Spontaneous
  Country: TW (occurrence: TW)
  Receive Date: 20221102
  Receipt Date: 20221102
  Transmission Date: 20230113
  Serious: Yes (Other)
  Sender: FDA-Public Use
  Company Number: TW-009507513-2210TWN010897

PATIENT
  Age: 39 Year
  Sex: Female

DRUGS (2)
  1. KEYTRUDA [Suspect]
     Active Substance: PEMBROLIZUMAB
     Indication: Ovarian cancer recurrent
     Dosage: 100 MG, Q3W, CYCLES
     Dates: start: 2017
  2. KEYTRUDA [Suspect]
     Active Substance: PEMBROLIZUMAB
     Indication: Mismatch repair cancer syndrome

REACTIONS (4)
  - Ovarian cancer recurrent [Unknown]
  - Uveitis [Unknown]
  - Therapy partial responder [Unknown]
  - Product use issue [Unknown]

NARRATIVE: CASE EVENT DATE: 20170101
